FAERS Safety Report 9084576 (Version 1)
Quarter: 2013Q1

REPORT INFORMATION
  Report Type: Report from Study
  Country: US (occurrence: US)
  Receive Date: 20130131
  Receipt Date: 20130131
  Transmission Date: 20140127
  Serious: No
  Sender: FDA-Public Use
  Company Number: US-ABBOTT-12P-163-0992051-00

PATIENT
  Age: 35 Year
  Sex: Female
  Weight: 97.61 kg

DRUGS (2)
  1. HUMIRA [Suspect]
     Indication: PSORIASIS
     Route: 058
     Dates: start: 20120903, end: 20120903
  2. HUMIRA [Suspect]
     Route: 058
     Dates: start: 20120910

REACTIONS (2)
  - Cough [Recovered/Resolved]
  - Upper respiratory tract infection [Recovered/Resolved]
